FAERS Safety Report 5495492-3 (Version None)
Quarter: 2007Q4

REPORT INFORMATION
  Report Type: 
  Country: None (occurrence: None)
  Receive Date: 20071023
  Receipt Date: 20071008
  Transmission Date: 20080405
  Serious: Yes (Hospitalization)
  Sender: FDA-Public Use
  Company Number: SPV1-200704495

PATIENT
  Age: 16 Year
  Sex: Male

DRUGS (2)
  1. DAYTRANA [Suspect]
     Indication: ATTENTION DEFICIT/HYPERACTIVITY DISORDER
     Dosage: UP TO 15 MG DAILY, TRANSDERMAL; 10 MG, 1X/DAY:QD, TRANSDERMAL
     Route: 062
     Dates: start: 20060101, end: 20070101
  2. DAYTRANA [Suspect]
     Indication: ATTENTION DEFICIT/HYPERACTIVITY DISORDER
     Dosage: UP TO 15 MG DAILY, TRANSDERMAL; 10 MG, 1X/DAY:QD, TRANSDERMAL
     Route: 062
     Dates: start: 20070101

REACTIONS (4)
  - DIZZINESS [None]
  - DYSKINESIA [None]
  - HEADACHE [None]
  - POSTURE ABNORMAL [None]
